FAERS Safety Report 15485231 (Version 2)
Quarter: 2019Q1

REPORT INFORMATION
  Report Type: Spontaneous
  Country: US (occurrence: US)
  Receive Date: 20181010
  Receipt Date: 20190214
  Transmission Date: 20190417
  Serious: No
  Sender: FDA-Public Use
  Company Number: US-ROCHE-2184268

PATIENT
  Sex: Male

DRUGS (3)
  1. ALECENSA [Suspect]
     Active Substance: ALECTINIB HYDROCHLORIDE
     Indication: LUNG NEOPLASM MALIGNANT
     Route: 048
     Dates: start: 20180911
  2. ALECENSA [Suspect]
     Active Substance: ALECTINIB HYDROCHLORIDE
     Route: 048
     Dates: start: 20180918
  3. ALECENSA [Suspect]
     Active Substance: ALECTINIB HYDROCHLORIDE
     Route: 048
     Dates: start: 20180917

REACTIONS (7)
  - Hypertonic bladder [Unknown]
  - Tachycardia [Unknown]
  - Feeling cold [Unknown]
  - Diarrhoea [Unknown]
  - Infrequent bowel movements [Unknown]
  - Fatigue [Unknown]
  - Heart rate decreased [Unknown]
